FAERS Safety Report 20196986 (Version 1)
Quarter: 2021Q4

REPORT INFORMATION
  Report Type: Spontaneous
  Country: JP (occurrence: JP)
  Receive Date: 20211217
  Receipt Date: 20211217
  Transmission Date: 20220303
  Serious: Yes (Hospitalization)
  Sender: FDA-Public Use
  Company Number: JP-SA-SAC20211211000015

PATIENT
  Sex: Female

DRUGS (5)
  1. AVAPRO [Suspect]
     Active Substance: IRBESARTAN
     Indication: Blood pressure increased
     Dosage: 100 MG, QD
     Route: 048
  2. AVAPRO [Suspect]
     Active Substance: IRBESARTAN
     Dosage: 50 MG, QD
     Route: 048
  3. AMLODIPINE BESYLATE [Suspect]
     Active Substance: AMLODIPINE BESYLATE
     Indication: Product used for unknown indication
     Dosage: UNK
     Route: 048
  4. VEKLURY [Concomitant]
     Active Substance: REMDESIVIR
     Dosage: UNK
  5. HALCION [Concomitant]
     Active Substance: TRIAZOLAM
     Dosage: UNK

REACTIONS (9)
  - Renal function test abnormal [Unknown]
  - COVID-19 [Unknown]
  - Weight increased [Unknown]
  - Weight decreased [Unknown]
  - Weight decreased [Unknown]
  - Blood pressure increased [Unknown]
  - Blood pressure decreased [Unknown]
  - Blood pressure decreased [Unknown]
  - Headache [Unknown]
